FAERS Safety Report 9280415 (Version 3)
Quarter: 2013Q2

REPORT INFORMATION
  Report Type: Spontaneous
  Country: GB (occurrence: GB)
  Receive Date: 20130509
  Receipt Date: 20130603
  Transmission Date: 20140414
  Serious: Yes (Hospitalization)
  Sender: FDA-Public Use
  Company Number: PHHY2013GB043343

PATIENT
  Age: 61 Year
  Sex: Female

DRUGS (1)
  1. CITALOPRAM [Suspect]
     Indication: DEPRESSION
     Dosage: 20 MG, BID (20 MG IN THE MORNING AND 20 MG IN THE AFTERNOON)
     Route: 048
     Dates: start: 2011

REACTIONS (3)
  - Homicide [Unknown]
  - Overdose [Unknown]
  - Withdrawal syndrome [Unknown]
